FAERS Safety Report 4690565-7 (Version None)
Quarter: 2005Q2

REPORT INFORMATION
  Report Type: 
  Country: None (occurrence: None)
  Receive Date: 20050614
  Receipt Date: 20050614
  Transmission Date: 20051028
  Serious: No
  Sender: FDA-Public Use
  Company Number: None

PATIENT
  Sex: Female

DRUGS (2)
  1. IMURAN [Suspect]
     Dosage: 75MG   QD   ORAL;   50MG  QD  ORAL
     Route: 048
     Dates: start: 20050208, end: 20050510
  2. IMURAN [Suspect]
     Dosage: 75MG   QD   ORAL;   50MG  QD  ORAL
     Route: 048
     Dates: start: 20050510, end: 20050603

REACTIONS (1)
  - NEUTROPENIA [None]
